FAERS Safety Report 9495689 (Version 1)
Quarter: 2013Q3

REPORT INFORMATION
  Report Type: Spontaneous
  Country: US (occurrence: US)
  Receive Date: 20130903
  Receipt Date: 20130903
  Transmission Date: 20140515
  Serious: Yes (Hospitalization)
  Sender: FDA-Public Use
  Company Number: US-B.I. PHARMACEUTICALS,INC./RIDGEFIELD-2013-BI-26601BP

PATIENT
  Age: 63 Year
  Sex: Female
  Weight: 54 kg

DRUGS (7)
  1. SPIRIVA [Suspect]
     Indication: CHRONIC OBSTRUCTIVE PULMONARY DISEASE
     Dosage: 18 MCG
     Route: 055
     Dates: start: 2013
  2. EFFEXOR [Concomitant]
     Indication: DEPRESSION
     Dosage: 150 MG
     Route: 048
  3. BUSBAR [Concomitant]
     Indication: DEPRESSION
     Dosage: 30 MG
     Route: 048
  4. MELOXICAM [Concomitant]
     Indication: SPONDYLITIS
     Dosage: 15 MG
     Route: 048
  5. VALUIM [Concomitant]
     Indication: PANIC ATTACK
     Route: 048
  6. VALUIM [Concomitant]
     Indication: MUSCLE SPASMS
  7. VICODIN [Concomitant]
     Indication: PAIN
     Route: 048

REACTIONS (7)
  - Convulsion [Recovered/Resolved]
  - Dyspnoea [Recovered/Resolved]
  - Pneumonia [Not Recovered/Not Resolved]
  - Bronchitis [Not Recovered/Not Resolved]
  - Asthenia [Not Recovered/Not Resolved]
  - Gait disturbance [Not Recovered/Not Resolved]
  - Cough [Not Recovered/Not Resolved]
